FAERS Safety Report 5227312-6 (Version None)
Quarter: 2007Q1

REPORT INFORMATION
  Report Type: 
  Country: None (occurrence: None)
  Receive Date: 20070202
  Receipt Date: 20070119
  Transmission Date: 20070707
  Serious: Yes (Hospitalization, Other)
  Sender: FDA-Public Use
  Company Number: GB-ELI_LILLY_AND_COMPANY-GB200701003687

PATIENT
  Age: 69 Year
  Sex: Female

DRUGS (11)
  1. DULOXETINE HYDROCHLORIDE [Suspect]
     Dosage: 30 MG, UNK
     Route: 048
     Dates: start: 20061229, end: 20061229
  2. CARBAMAZEPINE [Concomitant]
     Indication: BIPOLAR I DISORDER
     Dosage: UNK, DAILY (1/D)
     Route: 048
  3. HALOPERIDOL [Concomitant]
     Dosage: 1 MG, 2/D
     Route: 065
     Dates: start: 20061128
  4. HALOPERIDOL [Concomitant]
     Dosage: 3 MG, 2/D
     Route: 065
  5. LAMOTRIGINE [Concomitant]
     Dosage: 100 MG, 2/D
     Route: 065
     Dates: start: 20061212
  6. LAMOTRIGINE [Concomitant]
     Dosage: 125 MG, 2/D
     Route: 065
  7. LEVOTHYROXINE SODIUM [Concomitant]
     Dosage: 25 UG, DAILY (1/D)
     Route: 065
  8. LITHIUM CARBONATE [Concomitant]
     Indication: BIPOLAR I DISORDER
     Dosage: 700 MG, DAILY (1/D)
     Route: 048
  9. NARDIL [Concomitant]
     Indication: BIPOLAR I DISORDER
     Dosage: 30 MG, 2/D
     Route: 048
  10. TRIMIPRAMINE MALEATE [Concomitant]
     Indication: BIPOLAR I DISORDER
     Dosage: 100 MG, DAILY (1/D)
     Route: 048
     Dates: end: 20061227
  11. ZOPICLONE [Concomitant]
     Dosage: 7.5 MG, UNK
     Route: 065

REACTIONS (5)
  - DELUSION [None]
  - DYSPNOEA [None]
  - HYPOKINESIA [None]
  - MAJOR DEPRESSION [None]
  - MANIA [None]
